FAERS Safety Report 7277937-1 (Version None)
Quarter: 2011Q1

REPORT INFORMATION
  Report Type: 
  Country: None (occurrence: None)
  Receive Date: 20110207
  Receipt Date: 20110130
  Transmission Date: 20110831
  Serious: Yes (Hospitalization)
  Sender: FDA-Public Use
  Company Number: NL-MEDIMMUNE-MEDI-0012375

PATIENT
  Weight: 4.89 kg

DRUGS (2)
  1. SYNAGIS [Suspect]
     Route: 030
     Dates: start: 20101130, end: 20101228
  2. SYNAGIS [Suspect]
     Route: 030
     Dates: start: 20110127, end: 20110127

REACTIONS (2)
  - INFANTILE SPITTING UP [None]
  - CRYING [None]
